FAERS Safety Report 7892208-8 (Version None)
Quarter: 2011Q4

REPORT INFORMATION
  Report Type: 
  Country: None (occurrence: None)
  Receive Date: 20111104
  Receipt Date: 20111025
  Transmission Date: 20120403
  Serious: Yes (Hospitalization)
  Sender: FDA-Public Use
  Company Number: US-ASTRAZENECA-2011SE64752

PATIENT
  Age: 75 Year
  Sex: Female

DRUGS (4)
  1. PRILOSEC [Suspect]
     Dosage: 1 BEFORE BREAKFAST+ 1 BEFORE SUPPER
     Route: 048
  2. PRILOSEC [Suspect]
     Route: 048
  3. NEXIUM [Suspect]
     Dosage: DAILY
     Route: 048
  4. NEXIUM [Suspect]
     Dosage: 1 BEFORE BREAKFAST+ 1 BEFORE SUPPER
     Route: 048

REACTIONS (2)
  - HIATUS HERNIA [None]
  - DYSPHAGIA [None]
